FAERS Safety Report 6738635-3 (Version None)
Quarter: 2010Q2

REPORT INFORMATION
  Report Type: 
  Country: None (occurrence: None)
  Receive Date: 20100524
  Receipt Date: 20100514
  Transmission Date: 20101027
  Serious: Yes (Other)
  Sender: FDA-Public Use
  Company Number: AT-PFIZER INC-2010052911

PATIENT
  Age: 24 Year
  Sex: Female
  Weight: 54 kg

DRUGS (1)
  1. SAYANA [Suspect]
     Indication: CONTRACEPTION
     Dosage: UNK
     Route: 058
     Dates: start: 20100126

REACTIONS (1)
  - INJECTION SITE ATROPHY [None]
